FAERS Safety Report 8194526-5 (Version None)
Quarter: 2012Q1

REPORT INFORMATION
  Report Type: 
  Country: None (occurrence: None)
  Receive Date: 20120308
  Receipt Date: 20110523
  Transmission Date: 20120608
  Serious: No
  Sender: FDA-Public Use
  Company Number: US-GLAXOSMITHKLINE-A0928534A

PATIENT
  Age: 71 Year
  Sex: Female

DRUGS (3)
  1. NICORETTE [Suspect]
     Indication: EX-TOBACCO USER
  2. NICORETTE [Suspect]
     Indication: EX-TOBACCO USER
  3. NICORETTE [Suspect]
     Indication: EX-TOBACCO USER

REACTIONS (4)
  - DRUG ADMINISTRATION ERROR [None]
  - ORAL PAIN [None]
  - INTENTIONAL DRUG MISUSE [None]
  - ORAL DISCOMFORT [None]
